FAERS Safety Report 14491093 (Version 4)
Quarter: 2018Q3

REPORT INFORMATION
  Report Type: Spontaneous
  Country: US (occurrence: US)
  Receive Date: 20180206
  Receipt Date: 20180821
  Transmission Date: 20181010
  Serious: No
  Sender: FDA-Public Use
  Company Number: US-PFIZER INC-2017516555

PATIENT
  Age: 44 Year
  Sex: Female
  Weight: 94.79 kg

DRUGS (12)
  1. GENOTROPIN [Suspect]
     Active Substance: SOMATROPIN
     Indication: GROWTH HORMONE DEFICIENCY
     Dosage: 0.4 MG, DAILY
     Route: 058
  2. GENOTROPIN [Suspect]
     Active Substance: SOMATROPIN
     Dosage: 0.04 MG, 1X/DAY (ROTATE SITES UPPER PARTS OF STOMACH, LEGS, AND EACH BUTT CHEEK, ONCE A DAY)
     Dates: start: 201711
  3. GENOTROPIN [Suspect]
     Active Substance: SOMATROPIN
     Dosage: UNK
  4. EFFEXOR XR [Concomitant]
     Active Substance: VENLAFAXINE HYDROCHLORIDE
     Indication: ANXIETY
  5. PROZAC [Concomitant]
     Active Substance: FLUOXETINE HYDROCHLORIDE
     Indication: DEPRESSION
     Dosage: UNK
  6. GENOTROPIN [Suspect]
     Active Substance: SOMATROPIN
     Dosage: 0.4 MG, DAILY
     Dates: start: 201711
  7. PHENTERMINE. [Concomitant]
     Active Substance: PHENTERMINE
     Indication: WEIGHT DECREASED
     Dosage: 37.5 MG, UNK
  8. VITAMIN D [Concomitant]
     Active Substance: CHOLECALCIFEROL
     Indication: VITAMIN D DEFICIENCY
     Dosage: UNK UNK, 2X/WEEK
  9. EFFEXOR XR [Concomitant]
     Active Substance: VENLAFAXINE HYDROCHLORIDE
     Indication: DEPRESSION
     Dosage: 150 MG, 1X/DAY
  10. KLONOPIN [Concomitant]
     Active Substance: CLONAZEPAM
     Indication: PANIC ATTACK
     Dosage: 1 MG, UNK
  11. KLONOPIN [Concomitant]
     Active Substance: CLONAZEPAM
     Indication: ANXIETY
  12. LOSARTAN POTASSIUM. [Concomitant]
     Active Substance: LOSARTAN POTASSIUM
     Indication: HYPERTENSION
     Dosage: UNK

REACTIONS (20)
  - Drug dose omission [Unknown]
  - Nausea [Unknown]
  - Blood glucose increased [Unknown]
  - Mean cell volume increased [Unknown]
  - Incorrect dose administered [Unknown]
  - Chills [Unknown]
  - Asthenia [Unknown]
  - Blood potassium decreased [Unknown]
  - Device issue [Unknown]
  - Abdominal pain [Unknown]
  - Hypoaesthesia [Unknown]
  - White blood cell count increased [Unknown]
  - Mean cell haemoglobin increased [Unknown]
  - Wrong technique in product usage process [Unknown]
  - Hyperhidrosis [Unknown]
  - Fatigue [Unknown]
  - Blood pressure decreased [Unknown]
  - Carbon dioxide decreased [Unknown]
  - Lymphocyte count increased [Unknown]
  - Anion gap increased [Unknown]

NARRATIVE: CASE EVENT DATE: 20171130
